FAERS Safety Report 15813930 (Version 27)
Quarter: 2021Q4

REPORT INFORMATION
  Report Type: Report from Study
  Country: CO (occurrence: CO)
  Receive Date: 20190111
  Receipt Date: 20211119
  Transmission Date: 20220303
  Serious: Yes (Hospitalization, Other)
  Sender: FDA-Public Use
  Company Number: PHHY2018CO158076

PATIENT
  Age: 83 Year
  Sex: Female
  Weight: 58 kg

DRUGS (20)
  1. RUXOLITINIB [Suspect]
     Active Substance: RUXOLITINIB
     Indication: Myelofibrosis
     Dosage: 10 MG, QD
     Route: 048
  2. RUXOLITINIB [Suspect]
     Active Substance: RUXOLITINIB
     Dosage: 20 MG, Q12H
     Route: 048
  3. RUXOLITINIB [Suspect]
     Active Substance: RUXOLITINIB
     Dosage: 40 MG, QD
     Route: 048
  4. RUXOLITINIB [Suspect]
     Active Substance: RUXOLITINIB
     Dosage: 10 MG, QD
     Route: 048
     Dates: start: 20180921
  5. RUXOLITINIB [Suspect]
     Active Substance: RUXOLITINIB
     Dosage: 10 MG, Q12H
     Route: 048
     Dates: start: 20180923
  6. RUXOLITINIB [Suspect]
     Active Substance: RUXOLITINIB
     Dosage: 10 MG, QD
     Route: 048
  7. RUXOLITINIB [Suspect]
     Active Substance: RUXOLITINIB
     Dosage: 10 MG, Q12H
     Route: 048
  8. RUXOLITINIB [Suspect]
     Active Substance: RUXOLITINIB
     Dosage: 15 MG, Q12H
     Route: 048
  9. JADENU [Suspect]
     Active Substance: DEFERASIROX
     Indication: Iron overload
     Dosage: 180 MG, QD
     Route: 048
  10. JADENU [Suspect]
     Active Substance: DEFERASIROX
     Dosage: 360 MG, QD
     Route: 048
  11. ATORVASTATIN [Suspect]
     Active Substance: ATORVASTATIN
     Indication: Product used for unknown indication
     Route: 065
  12. AMLODIPINE [Suspect]
     Active Substance: AMLODIPINE BESYLATE
     Indication: Product used for unknown indication
     Dosage: UNK
     Route: 065
  13. CARVEDILOL [Suspect]
     Active Substance: CARVEDILOL
     Indication: Product used for unknown indication
     Dosage: 12.5 MG, UNK
     Route: 065
  14. ESOMEPRAZOLE [Suspect]
     Active Substance: ESOMEPRAZOLE
     Indication: Product used for unknown indication
     Route: 065
  15. LOSARTAN [Suspect]
     Active Substance: LOSARTAN
     Indication: Product used for unknown indication
     Dosage: 50 MG, UNK
     Route: 065
  16. PREDNISOLONE [Suspect]
     Active Substance: PREDNISOLONE
     Indication: Product used for unknown indication
     Dosage: 5 MG, UNK
     Route: 065
  17. AMITRIPTYLINE [Concomitant]
     Active Substance: AMITRIPTYLINE
     Indication: Product used for unknown indication
     Dosage: 25 MG, UNK
     Route: 065
  18. PRAZOSIN [Concomitant]
     Active Substance: PRAZOSIN
     Indication: Product used for unknown indication
     Route: 065
  19. ALPRAZOLAM [Concomitant]
     Active Substance: ALPRAZOLAM
     Indication: Product used for unknown indication
     Route: 065
  20. ENOXAPARIN [Concomitant]
     Active Substance: ENOXAPARIN
     Indication: Product used for unknown indication
     Dosage: 2 DF, (2 INJECTION 1 IN MORNING AND 1 IN NIGHT), UNK
     Route: 065

REACTIONS (21)
  - Duodenitis [Unknown]
  - Dyspepsia [Unknown]
  - Abdominal pain upper [Unknown]
  - Nausea [Unknown]
  - Vomiting [Unknown]
  - Hepatitis [Unknown]
  - Splenomegaly [Recovering/Resolving]
  - Dyspnoea [Unknown]
  - Blood iron increased [Unknown]
  - Haemoglobin decreased [Unknown]
  - Poisoning [Unknown]
  - Loss of consciousness [Unknown]
  - Psychiatric symptom [Unknown]
  - Blood creatinine increased [Not Recovered/Not Resolved]
  - Serum ferritin increased [Unknown]
  - Hyperhidrosis [Recovered/Resolved]
  - Haematotoxicity [Unknown]
  - Illness [Unknown]
  - Arthritis [Unknown]
  - Osteoporosis [Unknown]
  - Inappropriate schedule of product administration [Unknown]

NARRATIVE: CASE EVENT DATE: 20181001
